FAERS Safety Report 6823836-6 (Version None)
Quarter: 2010Q3

REPORT INFORMATION
  Report Type: 
  Country: None (occurrence: None)
  Receive Date: 20100708
  Receipt Date: 20060915
  Transmission Date: 20110219
  Serious: No
  Sender: FDA-Public Use
  Company Number: US-PFIZER INC-2006113936

PATIENT
  Sex: Male
  Weight: 66.68 kg

DRUGS (3)
  1. CHANTIX [Suspect]
     Route: 048
     Dates: start: 20060908
  2. METHADONE [Concomitant]
  3. TRAZODONE [Concomitant]
     Indication: INSOMNIA

REACTIONS (1)
  - DYSPNOEA [None]
